FAERS Safety Report 6006136-6 (Version None)
Quarter: 2008Q4

REPORT INFORMATION
  Report Type: 
  Country: None (occurrence: None)
  Receive Date: 20081217
  Receipt Date: 20080128
  Transmission Date: 20090506
  Serious: No
  Sender: FDA-Public Use
  Company Number: US-BAUSCH-2008BL000350

PATIENT
  Age: 57 Year
  Sex: Male

DRUGS (4)
  1. ZYLET [Suspect]
     Indication: DACRYOSTENOSIS ACQUIRED
     Route: 047
     Dates: start: 20080125, end: 20080125
  2. ZYLET [Suspect]
     Indication: EYE PAIN
     Route: 047
     Dates: start: 20080125, end: 20080125
  3. ZYLET [Suspect]
     Indication: VISUAL FIELD DEFECT
     Route: 047
     Dates: start: 20080125, end: 20080125
  4. PROPECIA /SWE/ [Concomitant]

REACTIONS (6)
  - CONJUNCTIVAL HYPERAEMIA [None]
  - DRUG HYPERSENSITIVITY [None]
  - EYE IRRITATION [None]
  - EYELID OEDEMA [None]
  - RASH [None]
  - SWELLING FACE [None]
